FAERS Safety Report 5947976-9 (Version None)
Quarter: 2008Q4

REPORT INFORMATION
  Report Type: 
  Country: None (occurrence: None)
  Receive Date: 20081110
  Receipt Date: 20081110
  Transmission Date: 20090506
  Serious: Yes (Hospitalization)
  Sender: FDA-Public Use
  Company Number: None

PATIENT
  Age: 65 Year
  Sex: Male
  Weight: 78.0187 kg

DRUGS (3)
  1. CISPLATIN [Suspect]
     Indication: BLADDER CANCER
     Dosage: 135MG D1 Q21D : INTRAVENOUS (NOT OTHERWISE SPECIFIED)
     Route: 042
     Dates: start: 20081002, end: 20081023
  2. AVASTIN [Suspect]
     Indication: BLADDER CANCER
     Dosage: 1217MG D1 Q 21D : INTRAVENOUS (NOT OTHERWISE SPECIFIED)
     Route: 042
     Dates: start: 20081002, end: 20081023
  3. GEMZAR [Suspect]
     Indication: BLADDER CANCER
     Dosage: 1930MG D1, D8 Q 21D : INTRAVENOUS (NOT OTHERWISE SPECIFIED)
     Route: 042
     Dates: start: 20081002, end: 20081023

REACTIONS (11)
  - BLOOD ALKALINE PHOSPHATASE INCREASED [None]
  - BLOOD CHLORIDE DECREASED [None]
  - BLOOD SODIUM DECREASED [None]
  - BURSA DISORDER [None]
  - CENTRAL NERVOUS SYSTEM LESION [None]
  - CHONDROCALCINOSIS [None]
  - ESCHERICHIA URINARY TRACT INFECTION [None]
  - HAEMOGLOBIN DECREASED [None]
  - PLATELET COUNT DECREASED [None]
  - PRESYNCOPE [None]
  - SYNCOPE [None]
